FAERS Safety Report 9095489 (Version 2)
Quarter: 2013Q2

REPORT INFORMATION
  Report Type: Spontaneous
  Country: GB (occurrence: GB)
  Receive Date: 20130219
  Receipt Date: 20130503
  Transmission Date: 20140414
  Serious: Yes (Hospitalization)
  Sender: FDA-Public Use
  Company Number: PHHY2013GB014891

PATIENT
  Age: 44 Year
  Sex: Male

DRUGS (1)
  1. CIPROFLOXACIN [Suspect]
     Indication: DIARRHOEA HAEMORRHAGIC
     Dosage: 500 MG, BID
     Route: 048

REACTIONS (15)
  - Enterocolitis infectious [Recovered/Resolved]
  - Haemolytic uraemic syndrome [Recovered/Resolved]
  - Thrombotic thrombocytopenic purpura [Recovered/Resolved]
  - Microangiopathic haemolytic anaemia [Recovered/Resolved]
  - Renal failure acute [Recovered/Resolved]
  - Gastrointestinal sounds abnormal [Recovered/Resolved]
  - Anuria [Recovered/Resolved]
  - Confusional state [Recovered/Resolved]
  - Consciousness fluctuating [Recovered/Resolved]
  - Grand mal convulsion [Recovered/Resolved]
  - Neutrophilia [Recovered/Resolved]
  - Thrombocytopenia [Recovered/Resolved]
  - Haemoglobin decreased [Recovered/Resolved]
  - Blood lactate dehydrogenase increased [Recovered/Resolved]
  - Diarrhoea haemorrhagic [Recovered/Resolved]
